FAERS Safety Report 8462222 (Version 3)
Quarter: 2013Q2

REPORT INFORMATION
  Report Type: Report from Study
  Country: NL (occurrence: NL)
  Receive Date: 20120316
  Receipt Date: 20130531
  Transmission Date: 20140414
  Serious: Yes (Other)
  Sender: FDA-Public Use
  Company Number: NL-BIOGENIDEC-2012BI008660

PATIENT
  Age: 30 Year
  Sex: Female
  Weight: 61 kg

DRUGS (6)
  1. TYSABRI [Suspect]
     Indication: MULTIPLE SCLEROSIS
     Route: 042
     Dates: start: 20071106, end: 20100519
  2. TYSABRI [Suspect]
     Indication: MULTIPLE SCLEROSIS
     Route: 042
  3. MODIODAL [Concomitant]
  4. TEMAZEPAM [Concomitant]
  5. YAZ [Concomitant]
     Indication: MENSTRUATION IRREGULAR
  6. SUMATRIPTAN [Concomitant]

REACTIONS (1)
  - Cervical dysplasia [Recovered/Resolved with Sequelae]
